FAERS Safety Report 22366834 (Version 1)
Quarter: 2023Q2

REPORT INFORMATION
  Report Type: Report from Study
  Country: CO (occurrence: CO)
  Receive Date: 20230525
  Receipt Date: 20230525
  Transmission Date: 20230722
  Serious: Yes (Hospitalization, Other)
  Sender: FDA-Public Use
  Company Number: CO-ABBVIE-5179923

PATIENT
  Age: 64 Year
  Sex: Female

DRUGS (1)
  1. ZEMPLAR [Suspect]
     Active Substance: PARICALCITOL
     Indication: Hyperparathyroidism secondary
     Route: 048
     Dates: start: 20201023, end: 20220910

REACTIONS (7)
  - Chills [Recovering/Resolving]
  - Dizziness [Recovering/Resolving]
  - Headache [Recovering/Resolving]
  - Unevaluable event [Recovering/Resolving]
  - Haemoglobin decreased [Recovering/Resolving]
  - Platelet disorder [Recovering/Resolving]
  - Device related bacteraemia [Recovering/Resolving]

NARRATIVE: CASE EVENT DATE: 20230201
